FAERS Safety Report 5947358-X (Version None)
Quarter: 2008Q4

REPORT INFORMATION
  Report Type: 
  Country: None (occurrence: None)
  Receive Date: 20081110
  Receipt Date: 20081029
  Transmission Date: 20090506
  Serious: Yes (Other)
  Sender: FDA-Public Use
  Company Number: US-PFIZER INC-2008091512

PATIENT
  Sex: Male
  Weight: 81.363 kg

DRUGS (6)
  1. SUTENT [Suspect]
     Indication: RENAL CELL CARCINOMA
     Dates: start: 20060530, end: 20080901
  2. LACTULOSE [Concomitant]
  3. NIFEDIPINE [Concomitant]
  4. METOPROLOL TARTRATE [Concomitant]
  5. VICODIN [Concomitant]
  6. HYZAAR [Concomitant]

REACTIONS (1)
  - GUILLAIN-BARRE SYNDROME [None]
